FAERS Safety Report 4315336-2 (Version None)
Quarter: 2004Q1

REPORT INFORMATION
  Report Type: 
  Country: None (occurrence: None)
  Receive Date: 20040309
  Receipt Date: 20040219
  Transmission Date: 20041129
  Serious: Yes (Hospitalization)
  Sender: FDA-Public Use
  Company Number: US_0402101016

PATIENT
  Age: 66 Year
  Sex: Female
  Weight: 89 kg

DRUGS (4)
  1. HUMULIN N [Suspect]
     Dosage: 42 U/IN THE MORNING
     Dates: start: 19910101
  2. HUMULIN R [Suspect]
  3. HYDRALAZINE HCL [Concomitant]
  4. LOSARTAN POTASSIUM [Concomitant]

REACTIONS (8)
  - BLOOD GLUCOSE DECREASED [None]
  - BLOOD GLUCOSE INCREASED [None]
  - CARPAL TUNNEL SYNDROME [None]
  - INSOMNIA [None]
  - IRRITABILITY [None]
  - NEUROPATHY [None]
  - PNEUMONIA [None]
  - TREMOR [None]
